FAERS Safety Report 6038349-1 (Version None)
Quarter: 2009Q1

REPORT INFORMATION
  Report Type: 
  Country: None (occurrence: None)
  Receive Date: 20090113
  Receipt Date: 20080417
  Transmission Date: 20090719
  Serious: Yes (Other)
  Sender: FDA-Public Use
  Company Number: 08-000650

PATIENT
  Sex: Female

DRUGS (1)
  1. FEMCON FE [Suspect]
     Indication: ORAL CONTRACEPTION
     Dosage: 0.4MG/35MCG, QD, ORAL
     Route: 048
     Dates: start: 20070801

REACTIONS (1)
  - GALLBLADDER DISORDER [None]
